FAERS Safety Report 7905730-2 (Version None)
Quarter: 2011Q4

REPORT INFORMATION
  Report Type: 
  Country: None (occurrence: None)
  Receive Date: 20111108
  Receipt Date: 20111024
  Transmission Date: 20120403
  Serious: Yes (Hospitalization)
  Sender: FDA-Public Use
  Company Number: 2011MA015747

PATIENT
  Age: 84 Year
  Sex: Male

DRUGS (14)
  1. HYDROCHLOROTHIAZIDE [Concomitant]
  2. ATENOLOL [Concomitant]
  3. LISINOPRIL [Concomitant]
  4. DONEPEZIL [Concomitant]
  5. ACETAMINOPHEN [Concomitant]
  6. BUPROPION HYDROCHLORIDE [Suspect]
     Dosage: 150 MG; BID
  7. ASPIRIN [Concomitant]
  8. MIRTAZAPINE [Concomitant]
  9. NITROGLYCERIN [Concomitant]
  10. LIDOCAINE 5% [Concomitant]
  11. ALLOPURINOL [Concomitant]
  12. GABAPENTIN [Concomitant]
  13. OMEPRAZOLE [Concomitant]
  14. PRAVASTATIN [Concomitant]

REACTIONS (10)
  - ATAXIA [None]
  - MUSCULAR WEAKNESS [None]
  - MOTOR DYSFUNCTION [None]
  - MENTAL STATUS CHANGES [None]
  - HALLUCINATION, VISUAL [None]
  - DYSARTHRIA [None]
  - AGITATION [None]
  - DELIRIUM [None]
  - TREMOR [None]
  - VERTIGO [None]
